FAERS Safety Report 8492365-9 (Version None)
Quarter: 2012Q3

REPORT INFORMATION
  Report Type: 
  Country: None (occurrence: None)
  Receive Date: 20120706
  Receipt Date: 20120628
  Transmission Date: 20120928
  Serious: Yes (Hospitalization)
  Sender: FDA-Public Use
  Company Number: FR-ROCHE-1083974

PATIENT
  Sex: Male
  Weight: 17.5 kg

DRUGS (1)
  1. SOMATROPIN [Suspect]
     Indication: GROWTH HORMONE DEFICIENCY
     Dosage: 0.39 MG/KG, 6 DAYS IN A WEEK
     Route: 058
     Dates: start: 20111108

REACTIONS (1)
  - TONSILLAR HYPERTROPHY [None]
